FAERS Safety Report 4960650-0 (Version None)
Quarter: 2006Q2

REPORT INFORMATION
  Report Type: 
  Country: None (occurrence: None)
  Receive Date: 20060403
  Receipt Date: 20051110
  Transmission Date: 20061013
  Serious: Yes (Hospitalization)
  Sender: FDA-Public Use
  Company Number: US-MERCK-0511USA02054

PATIENT
  Age: 38 Year
  Sex: Female
  Weight: 109 kg

DRUGS (4)
  1. VIOXX [Suspect]
     Indication: ARTHRITIS
     Route: 048
     Dates: start: 20000831, end: 20040714
  2. VIOXX [Suspect]
     Route: 048
     Dates: start: 20000831, end: 20040714
  3. VIOXX [Suspect]
     Indication: ARTHRALGIA
     Route: 048
     Dates: start: 20000831, end: 20040714
  4. VIOXX [Suspect]
     Route: 048
     Dates: start: 20000831, end: 20040714

REACTIONS (11)
  - ARTERIAL OCCLUSIVE DISEASE [None]
  - CEREBROVASCULAR ACCIDENT [None]
  - CHOLECYSTECTOMY [None]
  - CONJUNCTIVITIS [None]
  - DEPRESSION [None]
  - GALLBLADDER DISORDER [None]
  - HYSTERECTOMY [None]
  - LIPOMA [None]
  - THYROID DISORDER [None]
  - THYROIDECTOMY [None]
  - UTERINE DISORDER [None]
